FAERS Safety Report 25974106 (Version 1)
Quarter: 2025Q4

REPORT INFORMATION
  Report Type: Spontaneous
  Country: NP (occurrence: NP)
  Receive Date: 20251029
  Receipt Date: 20251029
  Transmission Date: 20260118
  Serious: Yes (Death, Hospitalization, Other)
  Sender: Onesource Specialty Pharma
  Company Number: NP-STRIDES ARCOLAB LIMITED-2025OS001043

PATIENT
  Age: 24 Year
  Sex: Female

DRUGS (8)
  1. ACETYLCYSTEINE [Suspect]
     Active Substance: ACETYLCYSTEINE
     Indication: Food poisoning
     Dosage: UNK
     Route: 065
  2. ACETYLCYSTEINE [Suspect]
     Active Substance: ACETYLCYSTEINE
     Indication: Acute hepatic failure
  3. DIETARY SUPPLEMENT\HERBALS\MILK THISTLE [Suspect]
     Active Substance: MILK THISTLE
     Indication: Food poisoning
     Dosage: 20 MILLIGRAM/KILOGRAM, QD
     Route: 065
  4. DIETARY SUPPLEMENT\HERBALS\MILK THISTLE [Suspect]
     Active Substance: MILK THISTLE
     Indication: Acute hepatic failure
  5. ACTIVATED CHARCOAL [Suspect]
     Active Substance: ACTIVATED CHARCOAL
     Indication: Food poisoning
     Dosage: UNK
     Route: 065
  6. ACTIVATED CHARCOAL [Suspect]
     Active Substance: ACTIVATED CHARCOAL
     Indication: Acute hepatic failure
  7. LACTULOSE [Suspect]
     Active Substance: LACTULOSE
     Indication: Food poisoning
     Dosage: UNK
     Route: 065
  8. LACTULOSE [Suspect]
     Active Substance: LACTULOSE
     Indication: Acute hepatic failure

REACTIONS (4)
  - Cardio-respiratory arrest [Fatal]
  - Condition aggravated [Fatal]
  - Disseminated intravascular coagulation [Fatal]
  - Off label use [Unknown]
